FAERS Safety Report 17559214 (Version 1)
Quarter: 2020Q1

REPORT INFORMATION
  Report Type: Spontaneous
  Country: US (occurrence: US)
  Receive Date: 20200319
  Receipt Date: 20200319
  Transmission Date: 20200409
  Serious: No
  Sender: FDA-Public Use
  Company Number: US-LUPIN PHARMACEUTICALS INC.-2019-05154

PATIENT
  Age: 42 Year
  Sex: Female
  Weight: 88.44 kg

DRUGS (1)
  1. BLISOVI [Suspect]
     Active Substance: ETHINYL ESTRADIOL\NORETHINDRONE ACETATE
     Indication: ORAL CONTRACEPTION
     Dosage: UNK
     Route: 048
     Dates: end: 20190701

REACTIONS (1)
  - Metrorrhagia [Recovering/Resolving]
